FAERS Safety Report 8472715-X (Version None)
Quarter: 2012Q2

REPORT INFORMATION
  Report Type: 
  Country: None (occurrence: None)
  Receive Date: 20120627
  Receipt Date: 20120620
  Transmission Date: 20120825
  Serious: Yes (Hospitalization, Other)
  Sender: FDA-Public Use
  Company Number: IT-PFIZER INC-2012147129

PATIENT
  Age: 58 Year
  Sex: Male

DRUGS (1)
  1. ZOLOFT [Suspect]
     Dosage: 800 MG, TOTAL
     Route: 048
     Dates: start: 20120613, end: 20120601

REACTIONS (4)
  - SOMNOLENCE [None]
  - HEART RATE INCREASED [None]
  - OXYGEN SATURATION DECREASED [None]
  - INTENTIONAL OVERDOSE [None]
